FAERS Safety Report 15605351 (Version 3)
Quarter: 2019Q1

REPORT INFORMATION
  Report Type: Report from Study
  Country: BR (occurrence: BR)
  Receive Date: 20181112
  Receipt Date: 20190318
  Transmission Date: 20190417
  Serious: Yes (Hospitalization, Other)
  Sender: FDA-Public Use
  Company Number: BR-UCBSA-2018049089

PATIENT
  Sex: Male
  Weight: 82 kg

DRUGS (7)
  1. LEVETIRACETAM. [Suspect]
     Active Substance: LEVETIRACETAM
     Dosage: 2000 MG IN MORNING AND 3000 MG AT NIGHT, 2X/DAY (BID)
     Route: 048
     Dates: start: 2006
  2. LEVETIRACETAM. [Suspect]
     Active Substance: LEVETIRACETAM
     Indication: EPILEPSY
     Dosage: 1000 MG, 2X/DAY (BID)
     Route: 048
     Dates: start: 2001
  3. LIMBITROL [Concomitant]
     Active Substance: AMITRIPTYLINE\CHLORDIAZEPOXIDE
     Indication: EPILEPSY
     Dosage: 25 MG, 3X/DAY (TID)
     Route: 048
     Dates: start: 2002
  4. LAMOTRIGINA [Concomitant]
     Active Substance: LAMOTRIGINE
     Indication: EPILEPSY
     Dosage: 500 MG, 5X/DAY
     Route: 048
     Dates: start: 2013
  5. LEVETIRACETAM. [Suspect]
     Active Substance: LEVETIRACETAM
     Dosage: UNSPECIFED DOSE INCREASED
     Route: 048
     Dates: end: 2006
  6. VIMPAT [Suspect]
     Active Substance: LACOSAMIDE
     Indication: EPILEPSY
     Dosage: 150 MG, 2X/DAY (BID)
     Route: 048
     Dates: start: 2001
  7. VIMPAT [Suspect]
     Active Substance: LACOSAMIDE
     Dosage: UNSPECIFED DOSE INCREASE
     Route: 048

REACTIONS (4)
  - Off label use [Unknown]
  - Drug ineffective [Unknown]
  - Seizure [Recovered/Resolved]
  - Overdose [Unknown]

NARRATIVE: CASE EVENT DATE: 2001
